FAERS Safety Report 13805288 (Version 1)
Quarter: 2017Q3

REPORT INFORMATION
  Report Type: Spontaneous
  Country: US (occurrence: US)
  Receive Date: 20170728
  Receipt Date: 20170728
  Transmission Date: 20171127
  Serious: Yes (Other)
  Sender: FDA-Public Use
  Company Number: None

PATIENT
  Age: 70 Year
  Sex: Female
  Weight: 89.4 kg

DRUGS (1)
  1. PLERIXAFOR [Suspect]
     Active Substance: PLERIXAFOR
     Indication: HAEMATOPOIETIC STEM CELL MOBILISATION
     Dosage: ?          OTHER FREQUENCY:ONCE;?
     Route: 058

REACTIONS (3)
  - Injection site pruritus [None]
  - Injection site erythema [None]
  - Nasal congestion [None]

NARRATIVE: CASE EVENT DATE: 20170720
